FAERS Safety Report 20052878 (Version 1)
Quarter: 2021Q4

REPORT INFORMATION
  Report Type: Spontaneous
  Country: US (occurrence: None)
  Receive Date: 20211109
  Receipt Date: 20211109
  Transmission Date: 20220303
  Serious: No
  Sender: FDA-Public Use
  Company Number: None

PATIENT
  Sex: Female

DRUGS (1)
  1. ACTHAR [Suspect]
     Active Substance: CORTICOTROPIN

REACTIONS (3)
  - Insomnia [None]
  - Dyspepsia [None]
  - Urinary retention [None]
